FAERS Safety Report 5751324-7 (Version None)
Quarter: 2008Q2

REPORT INFORMATION
  Report Type: 
  Country: None (occurrence: None)
  Receive Date: 20080528
  Receipt Date: 20080519
  Transmission Date: 20081010
  Serious: Yes (Other)
  Sender: FDA-Public Use
  Company Number: US-PFIZER INC-2008042698

PATIENT
  Sex: Male
  Weight: 95.3 kg

DRUGS (4)
  1. GEODON [Suspect]
     Indication: MENTAL DISORDER
  2. DEPAKOTE [Concomitant]
  3. QUINAPRIL [Concomitant]
  4. TEGRETOL [Concomitant]

REACTIONS (1)
  - DRUG DEPENDENCE [None]
